FAERS Safety Report 7489294-6 (Version None)
Quarter: 2011Q2

REPORT INFORMATION
  Report Type: 
  Country: None (occurrence: None)
  Receive Date: 20110518
  Receipt Date: 20110404
  Transmission Date: 20111010
  Serious: Yes (Hospitalization)
  Sender: FDA-Public Use
  Company Number: US-BAYER-2011-019781

PATIENT
  Age: 71 Year
  Sex: Male
  Weight: 113.38 kg

DRUGS (2)
  1. ASPIRIN [Suspect]
     Indication: ISCHAEMIC HEART DISEASE PROPHYLAXIS
  2. ALEVE (CAPLET) [Suspect]
     Indication: ARTHRITIS

REACTIONS (5)
  - SMALL INTESTINE ULCER [None]
  - LIVER DISORDER [None]
  - CROHN'S DISEASE [None]
  - COLITIS ULCERATIVE [None]
  - RECTAL HAEMORRHAGE [None]
